FAERS Safety Report 23860736 (Version 2)
Quarter: 2024Q2

REPORT INFORMATION
  Report Type: Spontaneous
  Country: GB (occurrence: GB)
  Receive Date: 20240516
  Receipt Date: 20240530
  Transmission Date: 20240716
  Serious: Yes (Life-Threatening)
  Sender: FDA-Public Use
  Company Number: GB-MHRA-TPP1312462C9763133YC1714484190077

PATIENT
  Age: 42 Year
  Sex: Female
  Weight: 55 kg

DRUGS (7)
  1. IBUPROFEN [Suspect]
     Active Substance: IBUPROFEN
     Indication: Ill-defined disorder
     Dosage: UNK
     Route: 065
     Dates: start: 20240430
  2. IBUPROFEN [Suspect]
     Active Substance: IBUPROFEN
     Dosage: 200 MILLIGRAM
     Route: 065
  3. AMOXICILLIN [Suspect]
     Active Substance: AMOXICILLIN
     Indication: Ill-defined disorder
     Dosage: 1 DOSAGE FORM, 3 TIMES A DAY
     Route: 065
     Dates: start: 20240426
  4. BECLOMETHASONE\FORMOTEROL [Suspect]
     Active Substance: BECLOMETHASONE\FORMOTEROL
     Indication: Ill-defined disorder
     Dosage: UNK,INHALE TWO DOSES TWICE A DAY
     Route: 055
     Dates: start: 20220913
  5. POTASSIUM BICARBONATE\SODIUM ALGINATE [Suspect]
     Active Substance: POTASSIUM BICARBONATE\SODIUM ALGINATE
     Indication: Ill-defined disorder
     Dosage: UNK, 5ML - 10ML 4 TIMES/DAY
     Route: 065
     Dates: start: 20240426
  6. THIAMINE [Suspect]
     Active Substance: THIAMINE
     Indication: Ill-defined disorder
     Dosage: UNK, 1 THREE TIMES DAILY
     Route: 065
     Dates: start: 20220913
  7. VENTOLIN [Suspect]
     Active Substance: ALBUTEROL SULFATE
     Indication: Ill-defined disorder
     Dosage: 2 DOSAGE FORM
     Route: 055
     Dates: start: 20220913

REACTIONS (1)
  - Vomiting [Recovered/Resolved]

NARRATIVE: CASE EVENT DATE: 20240430
